FAERS Safety Report 12133378 (Version 2)
Quarter: 2016Q1

REPORT INFORMATION
  Report Type: Report from Study
  Country: PH (occurrence: PH)
  Receive Date: 20160301
  Receipt Date: 20160316
  Transmission Date: 20160526
  Serious: Yes (Death, Hospitalization)
  Sender: FDA-Public Use
  Company Number: PHHY2016PH026715

PATIENT
  Age: 26 Year
  Sex: Female

DRUGS (4)
  1. GLIVEC [Suspect]
     Active Substance: IMATINIB MESYLATE
     Indication: CHRONIC MYELOID LEUKAEMIA
     Dosage: 400 MG, UNK
     Route: 048
     Dates: start: 2010, end: 2013
  2. HYDROXYUREA. [Concomitant]
     Active Substance: HYDROXYUREA
     Indication: BLOOD COUNT ABNORMAL
     Route: 065
     Dates: start: 2013, end: 2015
  3. TASIGNA [Suspect]
     Active Substance: NILOTINIB
     Indication: CHRONIC MYELOID LEUKAEMIA
     Dosage: 800 MG, UNK
     Route: 048
     Dates: start: 201507
  4. FERROUS SULFATE [Concomitant]
     Active Substance: FERROUS SULFATE\FERROUS SULFATE, DRIED
     Indication: MINERAL SUPPLEMENTATION
     Route: 048
     Dates: start: 2010, end: 2015

REACTIONS (10)
  - Vaginal haemorrhage [Fatal]
  - Aggression [Recovered/Resolved]
  - Constipation [Recovered/Resolved]
  - Haematuria [Fatal]
  - Gingival bleeding [Fatal]
  - Platelet count decreased [Fatal]
  - Haematochezia [Fatal]
  - Ear haemorrhage [Fatal]
  - Melaena [Fatal]
  - Hypovolaemic shock [Fatal]

NARRATIVE: CASE EVENT DATE: 20151128
